FAERS Safety Report 14984504 (Version 1)
Quarter: 2018Q2

REPORT INFORMATION
  Report Type: Spontaneous
  Country: US (occurrence: US)
  Receive Date: 20180515
  Receipt Date: 20180515
  Transmission Date: 20180711
  Serious: No
  Sender: FDA-Public Use
  Company Number: None

PATIENT
  Age: 57 Year
  Sex: Male

DRUGS (2)
  1. MYCOPHENOLATE MOF TAB 500MG [Suspect]
     Active Substance: MYCOPHENOLATE MOFETIL
  2. TACROLIMUS CAP 1MG [Suspect]
     Active Substance: TACROLIMUS

REACTIONS (1)
  - Aneurysm [None]

NARRATIVE: CASE EVENT DATE: 20180208
